FAERS Safety Report 13870129 (Version 1)
Quarter: 2017Q3

REPORT INFORMATION
  Report Type: Report from Study
  Country: US (occurrence: US)
  Receive Date: 20170815
  Receipt Date: 20170815
  Transmission Date: 20171127
  Serious: Yes (Other)
  Sender: FDA-Public Use
  Company Number: US-B.I. PHARMACEUTICALS,INC./RIDGEFIELD-2017-BI-044991

PATIENT
  Age: 68 Year
  Sex: Female

DRUGS (1)
  1. OFEV [Suspect]
     Active Substance: NINTEDANIB
     Indication: PULMONARY ARTERIAL HYPERTENSION
     Route: 048
     Dates: start: 20170721

REACTIONS (2)
  - Fatigue [Recovered/Resolved]
  - Diarrhoea [Recovered/Resolved]

NARRATIVE: CASE EVENT DATE: 20170721
